FAERS Safety Report 12361305 (Version 1)
Quarter: 2016Q2

REPORT INFORMATION
  Report Type: Spontaneous
  Country: US (occurrence: US)
  Receive Date: 20160512
  Receipt Date: 20160512
  Transmission Date: 20160815
  Serious: No
  Sender: FDA-Public Use
  Company Number: US-PFIZER INC-2016219687

PATIENT
  Age: 50 Year
  Sex: Female

DRUGS (2)
  1. SKELAXIN [Suspect]
     Active Substance: METAXALONE
     Indication: MUSCLE DISORDER
  2. FLEXERIL [Suspect]
     Active Substance: CYCLOBENZAPRINE HYDROCHLORIDE
     Indication: MUSCLE DISORDER

REACTIONS (2)
  - Flatulence [Unknown]
  - Abdominal discomfort [Unknown]
